FAERS Safety Report 6732659-8 (Version None)
Quarter: 2010Q2

REPORT INFORMATION
  Report Type: 
  Country: None (occurrence: None)
  Receive Date: 20100519
  Receipt Date: 20100204
  Transmission Date: 20101027
  Serious: No
  Sender: FDA-Public Use
  Company Number: US-BRISTOL-MYERS SQUIBB COMPANY-14449680

PATIENT
  Age: 27 Year
  Sex: Female
  Weight: 63 kg

DRUGS (1)
  1. BARACLUDE [Suspect]
     Indication: HEPATITIS B
     Route: 048
     Dates: start: 20060301, end: 20081001

REACTIONS (2)
  - NORMAL NEWBORN [None]
  - PREGNANCY [None]
